FAERS Safety Report 6115925-9 (Version None)
Quarter: 2009Q1

REPORT INFORMATION
  Report Type: 
  Country: None (occurrence: None)
  Receive Date: 20090311
  Receipt Date: 20090304
  Transmission Date: 20090719
  Serious: Yes (Disabling)
  Sender: FDA-Public Use
  Company Number: 2009SP003909

PATIENT
  Age: 50 Year
  Sex: Male

DRUGS (2)
  1. DESELEX (DESLORATADINE) (DESLORATADINE) [Suspect]
     Indication: RHINITIS ALLERGIC
     Dosage: ONCE; PO
     Route: 048
     Dates: start: 20080101
  2. LIPITOR [Concomitant]

REACTIONS (3)
  - FATIGUE [None]
  - MUCOSAL DRYNESS [None]
  - SOMNOLENCE [None]
